FAERS Safety Report 24557426 (Version 1)
Quarter: 2024Q4

REPORT INFORMATION
  Report Type: Report from Study
  Country: US (occurrence: US)
  Receive Date: 20241028
  Receipt Date: 20241028
  Transmission Date: 20250115
  Serious: Yes (Other)
  Sender: ABBVIE
  Company Number: US-ABBVIE-5978568

PATIENT
  Age: 76 Year
  Sex: Female

DRUGS (2)
  1. RINVOQ [Suspect]
     Active Substance: UPADACITINIB
     Indication: Osteoarthritis
     Dosage: FORM STRENGTH: 15 MG
     Route: 048
     Dates: start: 202405, end: 202407
  2. RINVOQ [Suspect]
     Active Substance: UPADACITINIB
     Indication: Osteoarthritis
     Dosage: FORM STRENGTH: 15 MG
     Route: 048
     Dates: start: 202408

REACTIONS (3)
  - Shoulder arthroplasty [Unknown]
  - Fall [Unknown]
  - Dyspnoea exertional [Not Recovered/Not Resolved]

NARRATIVE: CASE EVENT DATE: 20240501
